FAERS Safety Report 17167063 (Version 1)
Quarter: 2019Q4

REPORT INFORMATION
  Report Type: Report from Study
  Country: None (occurrence: US)
  Receive Date: 20191217
  Receipt Date: 20191217
  Transmission Date: 20200122
  Serious: Yes (Other)
  Sender: FDA-Public Use
  Company Number: US-ABBVIE-19K-163-2985339-00

PATIENT
  Age: 74 Year
  Sex: Male

DRUGS (1)
  1. HUMIRA [Suspect]
     Active Substance: ADALIMUMAB
     Indication: RHEUMATOID ARTHRITIS
     Route: 058
     Dates: end: 201810

REACTIONS (7)
  - Arthropathy [Recovering/Resolving]
  - Musculoskeletal stiffness [Unknown]
  - Asthenia [Unknown]
  - Shoulder arthroplasty [Recovering/Resolving]
  - Infection [Unknown]
  - Mobility decreased [Unknown]
  - Bone loss [Unknown]

NARRATIVE: CASE EVENT DATE: 201611
